FAERS Safety Report 24753237 (Version 1)
Quarter: 2024Q4

REPORT INFORMATION
  Report Type: Spontaneous
  Country: US (occurrence: US)
  Receive Date: 20241219
  Receipt Date: 20241219
  Transmission Date: 20250114
  Serious: Yes (Other)
  Sender: SANOFI AVENTIS
  Company Number: US-SA-2024SA374807

PATIENT
  Sex: Female

DRUGS (1)
  1. DUPIXENT [Suspect]
     Active Substance: DUPILUMAB
     Indication: Chronic myeloid leukaemia
     Dosage: 300 MG, QOW
     Route: 058

REACTIONS (2)
  - Pancreatitis [Unknown]
  - Product use in unapproved indication [Unknown]
